FAERS Safety Report 20751583 (Version 2)
Quarter: 2022Q2

REPORT INFORMATION
  Report Type: Spontaneous
  Country: JP (occurrence: JP)
  Receive Date: 20220426
  Receipt Date: 20220519
  Transmission Date: 20220720
  Serious: No
  Sender: FDA-Public Use
  Company Number: JP-LUPIN PHARMACEUTICALS INC.-2022-06109

PATIENT
  Age: 31 Year
  Sex: Female
  Weight: 70 kg

DRUGS (9)
  1. BETAMETHASONE [Suspect]
     Active Substance: BETAMETHASONE
     Indication: Maternal therapy to enhance foetal lung maturity
     Dosage: 12 MILLIGRAM (INJECTION) (SHE WAS ADMINISTERED TWO DOSES OF BETAMETHASONE (12 MG) AT AN INTERVAL OF
     Route: 030
     Dates: start: 20210423, end: 20210424
  2. PREDNISOLONE [Suspect]
     Active Substance: PREDNISOLONE
     Indication: Systemic lupus erythematosus
     Dosage: 5 MILLIGRAM, QD
     Route: 042
     Dates: start: 2013
  3. PREDNISOLONE [Suspect]
     Active Substance: PREDNISOLONE
     Dosage: 80 MILLIGRAM
     Route: 042
     Dates: end: 20210429
  4. PREDNISOLONE [Suspect]
     Active Substance: PREDNISOLONE
     Dosage: UNK
     Route: 048
  5. TACROLIMUS [Suspect]
     Active Substance: TACROLIMUS
     Indication: Systemic lupus erythematosus
     Dosage: 3 MILLIGRAM, QD
     Route: 065
     Dates: start: 2013, end: 20210424
  6. ASPIRIN [Suspect]
     Active Substance: ASPIRIN
     Indication: Systemic lupus erythematosus
     Dosage: 100 MILLIGRAM, QD
     Route: 065
     Dates: start: 2016, end: 20210423
  7. HEPARIN [Suspect]
     Active Substance: HEPARIN SODIUM
     Indication: Prophylaxis
     Dosage: 10000 UNIT, QD (SUBCUTANEOUS INJECTION OR INTRAVENOUS)
     Route: 058
     Dates: start: 20201113, end: 20210429
  8. HEPARIN [Suspect]
     Active Substance: HEPARIN SODIUM
     Dosage: 10000 UNIT, QD (SUBCUTANEOUS INJECTION OR INTRAVENOUS)
     Route: 042
     Dates: start: 20201113, end: 20210429
  9. NICARDIPINE [Suspect]
     Active Substance: NICARDIPINE
     Indication: Blood pressure increased
     Dosage: UNK
     Route: 042
     Dates: start: 20210424, end: 20210429

REACTIONS (2)
  - Exposure during pregnancy [Unknown]
  - Premature delivery [Unknown]
